FAERS Safety Report 8788092 (Version 1)
Quarter: 2012Q4

REPORT INFORMATION
  Report Type: 
  Country: US (occurrence: US)
  Receive Date: 20120914
  Receipt Date: 20120914
  Transmission Date: 20130627
  Serious: Yes (Other)
  Sender: FDA-Public Use
  Company Number: US-PFIZER INC-2012223963

PATIENT
  Age: 55 Year
  Sex: Female
  Weight: 112 kg

DRUGS (16)
  1. SUTENT [Suspect]
     Indication: METASTATIC RENAL CELL CARCINOMA
     Dosage: 50 mg, 42 day cycle
     Dates: start: 20120902
  2. VICTOZA PEN [Concomitant]
     Dosage: UNK
     Route: 058
  3. LANTUS [Concomitant]
     Dosage: UNK, 1x/day
     Route: 058
  4. JANUVIA [Concomitant]
  5. LYRICA [Concomitant]
     Indication: DIABETIC NEUROPATHY
     Dosage: 150 mg, 2x/day
  6. CYMBALTA [Concomitant]
     Dosage: 90 mg, 1x/day
  7. NEXIUM [Concomitant]
     Dosage: 40 mg, 1x/day
  8. DIOVAN [Concomitant]
  9. CRESTOR [Concomitant]
     Dosage: 10 mg, 1x/day
  10. TOPROL [Concomitant]
     Dosage: 25 mg, 1x/day
  11. SINGULAIR [Concomitant]
     Dosage: UNK, 1x/day
  12. PERCOCET [Concomitant]
     Dosage: 5/325 mg TID but tales only at bed time
  13. XANAX [Concomitant]
     Dosage: 1 mg, TID takes only at bedtime
  14. ASPIRIN [Concomitant]
     Dosage: 81 mg, 1x/day
  15. CALCIUM [Concomitant]
     Indication: SUPPLEMENTATION THERAPY
  16. VITAMIN D [Concomitant]

REACTIONS (2)
  - Haematuria [Recovered/Resolved]
  - Dysuria [Recovered/Resolved]
